FAERS Safety Report 6772509-7 (Version None)
Quarter: 2010Q2

REPORT INFORMATION
  Report Type: 
  Country: None (occurrence: None)
  Receive Date: 20100616
  Receipt Date: 20090827
  Transmission Date: 20101027
  Serious: No
  Sender: FDA-Public Use
  Company Number: US-ASTRAZENECA-2009SE10538

PATIENT
  Age: 11 Month
  Sex: Female
  Weight: 11.3 kg

DRUGS (3)
  1. PULMICORT RESPULES [Suspect]
     Indication: ASTHMA
     Route: 055
     Dates: start: 20090731, end: 20090801
  2. PULMICORT RESPULES [Suspect]
     Route: 055
     Dates: start: 20090823
  3. ALBUTEROL [Concomitant]

REACTIONS (2)
  - DYSPNOEA [None]
  - WHEEZING [None]
